FAERS Safety Report 11766569 (Version 2)
Quarter: 2016Q1

REPORT INFORMATION
  Report Type: Spontaneous
  Country: US (occurrence: US)
  Receive Date: 20151123
  Receipt Date: 20160208
  Transmission Date: 20160525
  Serious: No
  Sender: FDA-Public Use
  Company Number: US-ASTRAZENECA-2015SF10316

PATIENT
  Sex: Female

DRUGS (3)
  1. SYMBICORT [Suspect]
     Active Substance: BUDESONIDE\FORMOTEROL FUMARATE DIHYDRATE
     Dosage: 160/4.5, 2 PUFFS TWICE A DAY
     Route: 055
     Dates: start: 201510
  2. SYMBICORT [Suspect]
     Active Substance: BUDESONIDE\FORMOTEROL FUMARATE DIHYDRATE
     Dosage: 160/4.5, 2 PUFFS TWICE A DAY
     Route: 055
     Dates: start: 2014
  3. SYMBICORT [Suspect]
     Active Substance: BUDESONIDE\FORMOTEROL FUMARATE DIHYDRATE
     Dosage: 160/4.5, 2 PUFFS TWICE A DAY
     Route: 055
     Dates: start: 20151110

REACTIONS (3)
  - Intentional product misuse [Unknown]
  - Sneezing [Unknown]
  - Device failure [Unknown]
